FAERS Safety Report 15643333 (Version 1)
Quarter: 2018Q4

REPORT INFORMATION
  Report Type: Spontaneous
  Country: AT (occurrence: AT)
  Receive Date: 20181121
  Receipt Date: 20181121
  Transmission Date: 20190205
  Serious: Yes (Death)
  Sender: FDA-Public Use
  Company Number: AT-ELI_LILLY_AND_COMPANY-AT201811008941

PATIENT
  Age: 70 Year
  Sex: Female
  Weight: 52 kg

DRUGS (4)
  1. ERBITUX [Suspect]
     Active Substance: CETUXIMAB
     Indication: LIP AND/OR ORAL CAVITY CANCER
     Dosage: 400 MG/M2, UNKNOWN
     Route: 042
     Dates: start: 20181025, end: 20181025
  2. DIBONDRIN [Concomitant]
     Active Substance: DIPHENHYDRAMINE HYDROCHLORIDE
     Indication: PREMEDICATION
     Dosage: 30 MG, UNKNOWN
     Route: 042
     Dates: start: 20181025, end: 20181025
  3. DEXABENE [Concomitant]
     Indication: PREMEDICATION
     Dosage: 12 MG, UNKNOWN
     Route: 042
     Dates: start: 20181025, end: 20181025
  4. PANTOLOC [PANTOPRAZOLE SODIUM SESQUIHYDRATE] [Concomitant]
     Indication: PREMEDICATION
     Dosage: 40 MG, UNKNOWN
     Route: 042
     Dates: start: 20181025, end: 20181025

REACTIONS (4)
  - Respiratory arrest [Fatal]
  - Anaphylactic reaction [Fatal]
  - Seizure [Fatal]
  - Circulatory collapse [Fatal]

NARRATIVE: CASE EVENT DATE: 20181025
